FAERS Safety Report 19289278 (Version 2)
Quarter: 2021Q2

REPORT INFORMATION
  Report Type: Report from Study
  Country: UA (occurrence: UA)
  Receive Date: 20210521
  Receipt Date: 20210526
  Transmission Date: 20210717
  Serious: Yes (Hospitalization)
  Sender: FDA-Public Use
  Company Number: UA-CELGENEUS-UKR-20210503610

PATIENT
  Sex: Male

DRUGS (7)
  1. OZANIMOD. [Suspect]
     Active Substance: OZANIMOD
     Indication: RELAPSING MULTIPLE SCLEROSIS
     Dosage: 1 MILLIGRAM
     Route: 048
     Dates: start: 20170127, end: 20210121
  2. SOLU?MEDROL [Concomitant]
     Active Substance: METHYLPREDNISOLONE SODIUM SUCCINATE
     Indication: MULTIPLE SCLEROSIS RELAPSE
     Dosage: 10000 MILLIGRAM
     Route: 041
     Dates: start: 20210427
  3. LASOLVAN [Concomitant]
     Active Substance: AMBROXOL HYDROCHLORIDE
     Indication: COVID-19 PNEUMONIA
     Dosage: 1 TABLET
     Route: 048
     Dates: start: 20210509, end: 20210510
  4. NOOBUT IC [Concomitant]
     Indication: MULTIPLE SCLEROSIS
     Dosage: 250 MILLIGRAM
     Route: 048
     Dates: start: 20190416
  5. PARACETAMOL [Concomitant]
     Active Substance: ACETAMINOPHEN
     Indication: COVID-19 PNEUMONIA
     Dosage: 500 MILLIGRAM
     Route: 048
     Dates: start: 20210509, end: 20210510
  6. TERBINAFINE. [Concomitant]
     Active Substance: TERBINAFINE
     Indication: SEBORRHOEIC DERMATITIS
     Route: 041
     Dates: start: 20210417
  7. BILOBIL FORTE [Concomitant]
     Indication: MULTIPLE SCLEROSIS
     Dosage: 80 MILLIGRAM
     Route: 048

REACTIONS (1)
  - COVID-19 pneumonia [Not Recovered/Not Resolved]

NARRATIVE: CASE EVENT DATE: 20210509
